FAERS Safety Report 18728999 (Version 1)
Quarter: 2021Q1

REPORT INFORMATION
  Report Type: Spontaneous
  Country: GB (occurrence: GB)
  Receive Date: 20210112
  Receipt Date: 20210112
  Transmission Date: 20210419
  Serious: Yes (Disabling, Other)
  Sender: FDA-Public Use
  Company Number: NVSC2021GB003199

PATIENT
  Age: 26 Year
  Sex: Female
  Weight: 63.95 kg

DRUGS (6)
  1. HYDROCORTISONE. [Suspect]
     Active Substance: HYDROCORTISONE
     Dosage: 1 %, QD (WHEN NEEDED (RECOMMENDATION TO ^SE TWICE DAILY) (1 %, UNK)
     Route: 061
     Dates: start: 20020213, end: 20200604
  2. MOMETASONE FUROATE. [Suspect]
     Active Substance: MOMETASONE FUROATE
     Indication: ECZEMA
     Dosage: 0.1 %, QD (WHEN NEEDED RECOMMENDATION TO USE TWICE DAILY) (1 %, UNK)
     Route: 061
     Dates: end: 20200604
  3. EUMOVATE [Suspect]
     Active Substance: CLOBETASONE BUTYRATE
     Indication: ECZEMA
     Dosage: 0.05 %, QD ( WHEN NEEDED (RECOMMENDATION TO USE 1?2 TIMES)
     Route: 061
     Dates: start: 20120304, end: 20120624
  4. HYDROCORTISONE. [Suspect]
     Active Substance: HYDROCORTISONE
     Indication: ECZEMA
     Dosage: 1 %, UNK
     Route: 061
     Dates: start: 2019
  5. OTOMIZE [DEXAMETHASONE\NEOMYCIN SULFATE] [Suspect]
     Active Substance: DEXAMETHASONE\NEOMYCIN SULFATE
     Indication: EAR INFECTION
     Dosage: UNK UNK, QD (AS NECESSARY)
     Route: 065
     Dates: end: 20200604
  6. BETAMETHASONE. [Suspect]
     Active Substance: BETAMETHASONE
     Indication: ECZEMA
     Dosage: 0.1 %, QD (1 %, UNK) (WHEN NEEDED (RECOMMENDATION TO APPLY THINLY TWICE A DAY)
     Route: 061
     Dates: start: 20150310, end: 20150422

REACTIONS (16)
  - Skin exfoliation [Recovering/Resolving]
  - Skin atrophy [Recovering/Resolving]
  - Skin weeping [Recovering/Resolving]
  - Lymphadenopathy [Recovering/Resolving]
  - Hyperaesthesia [Recovering/Resolving]
  - Erythema [Recovering/Resolving]
  - Peripheral swelling [Recovered/Resolved]
  - Alopecia [Recovering/Resolving]
  - Eye swelling [Recovering/Resolving]
  - Steroid withdrawal syndrome [Recovering/Resolving]
  - Depression suicidal [Recovering/Resolving]
  - Pruritus [Recovering/Resolving]
  - Skin infection [Recovering/Resolving]
  - Medication error [Unknown]
  - Menstruation delayed [Recovered/Resolved]
  - Temperature regulation disorder [Recovering/Resolving]

NARRATIVE: CASE EVENT DATE: 20200610
